FAERS Safety Report 6916553-5 (Version None)
Quarter: 2010Q3

REPORT INFORMATION
  Report Type: 
  Country: None (occurrence: None)
  Receive Date: 20100805
  Receipt Date: 20100729
  Transmission Date: 20110219
  Serious: Yes (Other)
  Sender: FDA-Public Use
  Company Number: 2010SP041671

PATIENT
  Age: 39 Year
  Sex: Female
  Weight: 110.8 kg

DRUGS (4)
  1. IMPLANON [Suspect]
     Indication: CONTRACEPTION
     Dosage: 1 DF;SC
     Route: 058
     Dates: start: 20100428
  2. CERAZETTE (DESOGETSREL /00754001/) [Suspect]
     Indication: CONTRACEPTION
     Dosage: PO
     Route: 048
     Dates: start: 20091118, end: 20100501
  3. ENALAPRIL [Concomitant]
  4. NIFEDIPINE [Concomitant]

REACTIONS (2)
  - COLITIS ULCERATIVE [None]
  - CONDITION AGGRAVATED [None]
